APPROVED DRUG PRODUCT: ETOMIDATE
Active Ingredient: ETOMIDATE
Strength: 2MG/ML
Dosage Form/Route: INJECTABLE;INJECTION
Application: A201044 | Product #001 | TE Code: AP
Applicant: MYLAN LABORATORIES LTD
Approved: Feb 7, 2017 | RLD: No | RS: No | Type: RX